FAERS Safety Report 7590690-7 (Version None)
Quarter: 2011Q3

REPORT INFORMATION
  Report Type: 
  Country: None (occurrence: None)
  Receive Date: 20110705
  Receipt Date: 20110701
  Transmission Date: 20111222
  Serious: Yes (Hospitalization)
  Sender: FDA-Public Use
  Company Number: IT-PFIZER INC-2011136459

PATIENT
  Age: 80 Year
  Sex: Female

DRUGS (4)
  1. INDERAL [Concomitant]
     Route: 065
  2. VALSARTAN [Concomitant]
     Route: 065
  3. FUROSEMIDE [Concomitant]
  4. LYRICA [Suspect]
     Indication: NEURALGIA
     Dosage: 75 MG, SINGLE
     Route: 048
     Dates: start: 20110422, end: 20110422

REACTIONS (2)
  - EYELID OEDEMA [None]
  - PALATAL OEDEMA [None]
